FAERS Safety Report 4808051-X (Version None)
Quarter: 2005Q4

REPORT INFORMATION
  Report Type: 
  Country: None (occurrence: None)
  Receive Date: 20051024
  Receipt Date: 20050308
  Transmission Date: 20060501
  Serious: Yes (Hospitalization, Disabling)
  Sender: FDA-Public Use
  Company Number: US-MERCK-0503USA01384

PATIENT
  Age: 66 Year
  Sex: Female

DRUGS (17)
  1. VIOXX [Suspect]
     Route: 048
  2. LASIX [Concomitant]
     Route: 065
  3. K-DUR 10 [Concomitant]
     Route: 065
  4. ZESTRIL [Concomitant]
     Route: 065
  5. PREMARIN [Concomitant]
     Route: 065
  6. SYNTHROID [Concomitant]
     Route: 065
  7. LANOXIN [Concomitant]
     Route: 065
  8. RYTHMOL [Concomitant]
     Route: 065
  9. NEXIUM [Concomitant]
     Route: 065
  10. ZOLOFT [Concomitant]
     Indication: DEPRESSION
     Route: 065
  11. FLEXERIL [Concomitant]
     Route: 065
  12. DARVON [Concomitant]
     Route: 065
  13. VITAMINS (UNSPECIFIED) [Concomitant]
     Route: 065
  14. BIOTIN [Concomitant]
     Route: 065
  15. FOLIC ACID [Concomitant]
     Route: 065
  16. TYLENOL (CAPLET) [Concomitant]
     Route: 065
  17. ATROVENT [Concomitant]
     Route: 065

REACTIONS (16)
  - ACUTE MYOCARDIAL INFARCTION [None]
  - CARDIAC FAILURE CONGESTIVE [None]
  - CAROTID ARTERY STENOSIS [None]
  - CEREBROVASCULAR ACCIDENT [None]
  - CEREBROVASCULAR DISORDER [None]
  - CERVICAL MYELOPATHY [None]
  - CERVICAL SPINAL STENOSIS [None]
  - HYPERTENSION [None]
  - HYPOTENSION [None]
  - HYPOXIA [None]
  - INTERVERTEBRAL DISC DEGENERATION [None]
  - KERATITIS [None]
  - MENTAL STATUS CHANGES [None]
  - OSTEOARTHRITIS [None]
  - PNEUMONIA [None]
  - ROTATOR CUFF SYNDROME [None]
